FAERS Safety Report 4299062-4 (Version None)
Quarter: 2004Q1

REPORT INFORMATION
  Report Type: 
  Country: None (occurrence: None)
  Receive Date: 20040217
  Receipt Date: 20040202
  Transmission Date: 20041129
  Serious: Yes (Other)
  Sender: FDA-Public Use
  Company Number: HQWYE804203FEB04

PATIENT
  Sex: Male

DRUGS (1)
  1. EFFEXOR [Suspect]
     Indication: SOCIAL PHOBIA
     Dosage: SEE IMAGE
     Route: 048

REACTIONS (7)
  - AGGRESSION [None]
  - AMNESIA [None]
  - FEELING ABNORMAL [None]
  - IMPRISONMENT [None]
  - PHYSICAL ASSAULT [None]
  - SOMNOLENCE [None]
  - TRUANCY [None]
